FAERS Safety Report 11218010 (Version 2)
Quarter: 2015Q3

REPORT INFORMATION
  Report Type: Spontaneous
  Country: US (occurrence: US)
  Receive Date: 20150625
  Receipt Date: 20150716
  Transmission Date: 20151125
  Serious: Yes (Death, Hospitalization)
  Sender: FDA-Public Use
  Company Number: US-ROCHE-1598984

PATIENT
  Age: 53 Year
  Sex: Male

DRUGS (1)
  1. TNKASE [Suspect]
     Active Substance: ISOPROPYL ALCOHOL\TENECTEPLASE
     Indication: ISCHAEMIC STROKE
     Dosage: SINGLE BOLUS
     Route: 065

REACTIONS (4)
  - Haemorrhage [Not Recovered/Not Resolved]
  - Blood pressure increased [Fatal]
  - Medication error [Unknown]
  - Cerebral haemorrhage [Fatal]
